FAERS Safety Report 22062906 (Version 2)
Quarter: 2023Q2

REPORT INFORMATION
  Report Type: Report from Study
  Country: US (occurrence: US)
  Receive Date: 20230306
  Receipt Date: 20230428
  Transmission Date: 20230722
  Serious: No
  Sender: FDA-Public Use
  Company Number: US-ACADIA PHARMACEUTICALS INC.-ACA-2023-PIM-000580

PATIENT
  Sex: Male

DRUGS (16)
  1. NUPLAZID [Suspect]
     Active Substance: PIMAVANSERIN TARTRATE
     Indication: Parkinson^s disease psychosis
     Dosage: 34 MILLIGRAM, QD
     Route: 048
     Dates: start: 20230129
  2. ABILIFY [Concomitant]
     Active Substance: ARIPIPRAZOLE
  3. EROSET [Concomitant]
  4. PLAVIX [Concomitant]
     Active Substance: CLOPIDOGREL BISULFATE
  5. VITAMIN C [Concomitant]
     Active Substance: ASCORBIC ACID
  6. ACETAMINOPHEN [Concomitant]
     Active Substance: ACETAMINOPHEN
  7. IRON [Concomitant]
     Active Substance: IRON
  8. MELATONIN [Concomitant]
     Active Substance: MELATONIN
  9. SINEMET [Concomitant]
     Active Substance: CARBIDOPA\LEVODOPA
  10. FINASTERIDE [Concomitant]
     Active Substance: FINASTERIDE
  11. DONEPEZIL [Concomitant]
     Active Substance: DONEPEZIL
  12. CHOLECALCIFEROL [Concomitant]
     Active Substance: CHOLECALCIFEROL
  13. ARIPIPRAZOLE [Concomitant]
     Active Substance: ARIPIPRAZOLE
  14. LORATADINE [Concomitant]
     Active Substance: LORATADINE
  15. ESOMEPRAZOLE [Concomitant]
     Active Substance: ESOMEPRAZOLE
  16. MIDODRINE [Concomitant]
     Active Substance: MIDODRINE

REACTIONS (4)
  - Hypersomnia [Not Recovered/Not Resolved]
  - Condition aggravated [Unknown]
  - Hallucination, visual [Unknown]
  - Confusional state [Unknown]
